FAERS Safety Report 6070168-2 (Version None)
Quarter: 2009Q1

REPORT INFORMATION
  Report Type: 
  Country: None (occurrence: None)
  Receive Date: 20090204
  Receipt Date: 20090126
  Transmission Date: 20090719
  Serious: Yes (Disabling)
  Sender: FDA-Public Use
  Company Number: CIP09000177

PATIENT
  Age: 93 Year
  Sex: Female

DRUGS (6)
  1. RISEDRONATE SODIUM [Suspect]
     Indication: OSTEOPOROSIS
     Dosage: 2.5 MG DAILY, ORAL
     Route: 048
     Dates: start: 20030101
  2. BEHYD (BENZYLHYDROCHLORTHIAZIDE) [Concomitant]
  3. ATENELEN (SODIUM GUALENATE) [Concomitant]
  4. CANSELIN /00215601/ (PINDOLOL) [Concomitant]
  5. PINDOLOL [Concomitant]
  6. AMARYL [Concomitant]

REACTIONS (7)
  - IMPAIRED HEALING [None]
  - JAW DISORDER [None]
  - ORAL DISCHARGE [None]
  - OSTEOMYELITIS [None]
  - OSTEONECROSIS [None]
  - PURULENT DISCHARGE [None]
  - TOOTH EXTRACTION [None]
